FAERS Safety Report 9967572 (Version 3)
Quarter: 2016Q1

REPORT INFORMATION
  Report Type: Report from Study
  Country: US (occurrence: US)
  Receive Date: 20140305
  Receipt Date: 20160125
  Transmission Date: 20160526
  Serious: Yes (Hospitalization, Other)
  Sender: FDA-Public Use
  Company Number: US-ABBVIE-13P-163-1139253-00

PATIENT
  Age: 36 Year
  Sex: Female
  Weight: 61.29 kg

DRUGS (6)
  1. ADVIL [Concomitant]
     Active Substance: IBUPROFEN
     Indication: MIGRAINE
     Route: 048
  2. CYCLOBENZAPRINE [Concomitant]
     Active Substance: CYCLOBENZAPRINE
     Indication: ARTHROPATHY
     Route: 048
  3. HUMIRA [Suspect]
     Active Substance: ADALIMUMAB
     Indication: PSORIASIS
     Route: 058
     Dates: start: 201112, end: 201305
  4. HUMIRA [Suspect]
     Active Substance: ADALIMUMAB
     Route: 058
     Dates: start: 201306
  5. HYDROXYZINE [Concomitant]
     Active Substance: HYDROXYZINE\HYDROXYZINE HYDROCHLORIDE
     Indication: PSORIASIS
     Route: 048
  6. LORATADINE. [Concomitant]
     Active Substance: LORATADINE
     Indication: HYPERSENSITIVITY
     Route: 048

REACTIONS (4)
  - Follicular thyroid cancer [Recovered/Resolved]
  - Psoriasis [Recovered/Resolved]
  - Papillary thyroid cancer [Recovering/Resolving]
  - Autoimmune thyroiditis [Not Recovered/Not Resolved]

NARRATIVE: CASE EVENT DATE: 2013
